FAERS Safety Report 9740085 (Version 1)
Quarter: 2013Q4

REPORT INFORMATION
  Report Type: Spontaneous
  Country: FR (occurrence: FR)
  Receive Date: 20131209
  Receipt Date: 20131209
  Transmission Date: 20140711
  Serious: Yes (Hospitalization)
  Sender: FDA-Public Use
  Company Number: FR-GLAXOSMITHKLINE-B0950240A

PATIENT
  Age: 93 Year
  Sex: Female
  Weight: 73.4 kg

DRUGS (5)
  1. ARIXTRA [Suspect]
     Indication: THROMBOSIS PROPHYLAXIS
     Dosage: 7.5MG PER DAY
     Route: 058
     Dates: start: 20130725, end: 20130819
  2. L THYROXINE [Concomitant]
     Dosage: 75MCG PER DAY
     Route: 048
  3. CROMOPTIC [Concomitant]
     Dosage: 2PCT SEE DOSAGE TEXT
     Route: 047
  4. TRAVATAN [Concomitant]
     Dosage: 40MCG PER DAY
     Route: 047
  5. KARDEGIC [Concomitant]
     Dates: end: 201307

REACTIONS (4)
  - Haematoma [Recovering/Resolving]
  - Anaemia [Recovering/Resolving]
  - Tachypnoea [Unknown]
  - Off label use [Unknown]
